FAERS Safety Report 25423425 (Version 1)
Quarter: 2025Q2

REPORT INFORMATION
  Report Type: Spontaneous
  Country: US (occurrence: US)
  Receive Date: 20250611
  Receipt Date: 20250611
  Transmission Date: 20250717
  Serious: No
  Sender: MYLAN
  Company Number: US-MYLANLABS-2025M1047027

PATIENT
  Sex: Female

DRUGS (1)
  1. RYZUMVI [Suspect]
     Active Substance: PHENTOLAMINE MESYLATE
     Indication: Product used for unknown indication

REACTIONS (1)
  - Ocular hyperaemia [Unknown]
